FAERS Safety Report 10223074 (Version 2)
Quarter: 2014Q2

REPORT INFORMATION
  Report Type: Spontaneous
  Country: GB (occurrence: GB)
  Receive Date: 20140607
  Receipt Date: 20140607
  Transmission Date: 20141212
  Serious: Yes (Other)
  Sender: FDA-Public Use
  Company Number: PHFR2014GB002841

PATIENT
  Age: 48 Year
  Sex: Female
  Weight: 101.8 kg

DRUGS (13)
  1. CLOZARIL [Suspect]
     Dosage: UNK
     Route: 048
     Dates: start: 20110621
  2. CLOZARIL [Suspect]
     Dosage: 300 MG
     Route: 048
     Dates: start: 20120620
  3. CLOZARIL [Suspect]
     Dosage: 200 MG
     Route: 048
     Dates: start: 20131015
  4. CLOZARIL [Suspect]
     Dosage: 300 MG
     Route: 048
     Dates: start: 20140419
  5. LEVOTHYROXINE [Concomitant]
     Dosage: 25 UG
     Route: 048
     Dates: start: 20130424
  6. METFORMIN [Concomitant]
     Dosage: 1 G
     Route: 048
     Dates: start: 20130612
  7. MOVICOL [Concomitant]
     Dosage: 1 DF
     Route: 048
     Dates: start: 20101026
  8. ATORVASTATIN [Concomitant]
     Dosage: 40 MG
     Route: 048
     Dates: start: 20130423
  9. FYBOGEL [Concomitant]
     Dosage: 1 DF
     Route: 048
     Dates: start: 20101026
  10. GLICLAZIDE [Concomitant]
     Dosage: 80 MG
     Route: 048
     Dates: start: 20140225
  11. ZOPICLONE [Concomitant]
     Dosage: 7.5 MG
     Route: 048
     Dates: start: 20120619
  12. DEPAKOTE [Concomitant]
     Dosage: 750 MG
     Route: 048
     Dates: start: 20140211
  13. VENLAFAXINE [Concomitant]
     Dosage: 375 MG
     Route: 048
     Dates: start: 20131111

REACTIONS (3)
  - Schizophrenia [Not Recovered/Not Resolved]
  - Diarrhoea [Recovered/Resolved]
  - Vomiting [Recovered/Resolved]
